FAERS Safety Report 7369991-3 (Version None)
Quarter: 2011Q1

REPORT INFORMATION
  Report Type: 
  Country: None (occurrence: None)
  Receive Date: 20110318
  Receipt Date: 20110318
  Transmission Date: 20110831
  Serious: Yes (Other)
  Sender: FDA-Public Use
  Company Number: None

PATIENT
  Age: 72 Year
  Sex: Female
  Weight: 87.0906 kg

DRUGS (1)
  1. AGGRENOX [Suspect]
     Indication: CEREBROVASCULAR ACCIDENT
     Dosage: 1 TAB 2X DAY PO
     Route: 048
     Dates: start: 20110316, end: 20110317

REACTIONS (2)
  - INFLUENZA LIKE ILLNESS [None]
  - HEADACHE [None]
